FAERS Safety Report 7639517-5 (Version None)
Quarter: 2011Q3

REPORT INFORMATION
  Report Type: 
  Country: None (occurrence: None)
  Receive Date: 20110727
  Receipt Date: 20110720
  Transmission Date: 20111222
  Serious: Yes (Other)
  Sender: FDA-Public Use
  Company Number: FR-GLAXOSMITHKLINE-B0708449A

PATIENT
  Sex: Male

DRUGS (5)
  1. REQUIP [Suspect]
     Indication: PARKINSON'S DISEASE
     Route: 048
  2. METFORMIN HCL [Suspect]
     Route: 048
  3. STALEVO 100 [Suspect]
     Indication: PARKINSON'S DISEASE
     Dosage: 600MG PER DAY
     Route: 048
  4. MODOPAR [Suspect]
     Indication: PARKINSON'S DISEASE
     Dosage: 125MG PER DAY
     Route: 048
  5. AMANTADINE HCL [Suspect]
     Indication: PARKINSON'S DISEASE
     Dosage: 100MG PER DAY
     Route: 048

REACTIONS (2)
  - SUDDEN ONSET OF SLEEP [None]
  - HYPOTONIA [None]
